FAERS Safety Report 6636833-0 (Version None)
Quarter: 2010Q1

REPORT INFORMATION
  Report Type: 
  Country: None (occurrence: None)
  Receive Date: 20100316
  Receipt Date: 20100302
  Transmission Date: 20100710
  Serious: Yes (Other)
  Sender: FDA-Public Use
  Company Number: ES-MYLANLABS-2010S1003454

PATIENT
  Age: 75 Year
  Sex: Female

DRUGS (3)
  1. IBUPROFEN [Suspect]
     Route: 065
  2. FUROSEMIDE [Suspect]
     Indication: OEDEMA PERIPHERAL
  3. AMOXICILLIN AND CLAVULANATE POTASSIUM [Concomitant]
     Route: 065

REACTIONS (5)
  - DEHYDRATION [None]
  - HYPERKALAEMIA [None]
  - NEPHROPATHY [None]
  - PARALYSIS [None]
  - RENAL FAILURE ACUTE [None]
